FAERS Safety Report 7903488-4 (Version None)
Quarter: 2011Q4

REPORT INFORMATION
  Report Type: 
  Country: None (occurrence: None)
  Receive Date: 20111107
  Receipt Date: 20111031
  Transmission Date: 20120403
  Serious: Yes (Death)
  Sender: FDA-Public Use
  Company Number: CPI 2781

PATIENT
  Age: 53 Year
  Sex: Male

DRUGS (4)
  1. ACETYLCYSTEINE [Suspect]
     Dosage: 126,000 MG ONE-TIME IV
     Route: 042
  2. HEPARIN [Concomitant]
  3. PHENYLEPHRINE (0.1 MG/MIN) [Concomitant]
  4. ASPIRIN [Concomitant]

REACTIONS (6)
  - PERIORBITAL OEDEMA [None]
  - HYPOTENSION [None]
  - OVERDOSE [None]
  - HYPOKINESIA [None]
  - MYOCARDIAL INFARCTION [None]
  - RASH [None]
